FAERS Safety Report 11935292 (Version 1)
Quarter: 2016Q1

REPORT INFORMATION
  Report Type: Spontaneous
  Country: US (occurrence: US)
  Receive Date: 20160121
  Receipt Date: 20160121
  Transmission Date: 20160526
  Serious: No
  Sender: FDA-Public Use
  Company Number: US-GLAXOSMITHKLINE-US2016004739

PATIENT
  Age: 56 Year
  Sex: Female

DRUGS (1)
  1. FLONASE [Suspect]
     Active Substance: FLUTICASONE PROPIONATE
     Indication: HYPERSENSITIVITY

REACTIONS (4)
  - Lacrimation increased [Recovered/Resolved]
  - Product odour abnormal [Unknown]
  - Sneezing [Recovered/Resolved]
  - Malaise [Recovered/Resolved]
